FAERS Safety Report 16793794 (Version 2)
Quarter: 2019Q3

REPORT INFORMATION
  Report Type: Spontaneous
  Country: US (occurrence: US)
  Receive Date: 20190911
  Receipt Date: 20190919
  Transmission Date: 20191005
  Serious: Yes (Other)
  Sender: FDA-Public Use
  Company Number: US-ASTRAZENECA-2019SF26778

PATIENT
  Age: 46 Year
  Sex: Female

DRUGS (1)
  1. ZOMIG [Suspect]
     Active Substance: ZOLMITRIPTAN
     Indication: MIGRAINE
     Dosage: ADMINISTER 1 SPRAY INTO ONE NOSTRIL AT ONSET OF MIGRAINE. MAY REPEAT DOSE IN 2 HOURS. NO MORE THA...
     Route: 045
     Dates: start: 20190815, end: 20190816

REACTIONS (6)
  - Pain [Unknown]
  - Nausea [Recovered/Resolved]
  - Visual impairment [Recovered/Resolved]
  - Respiratory rate increased [Unknown]
  - Gait disturbance [Recovered/Resolved]
  - Hypertension [Recovered/Resolved]

NARRATIVE: CASE EVENT DATE: 20190815
